FAERS Safety Report 7686387-5 (Version None)
Quarter: 2011Q3

REPORT INFORMATION
  Report Type: 
  Country: None (occurrence: None)
  Receive Date: 20110816
  Receipt Date: 20110809
  Transmission Date: 20111222
  Serious: Yes (Hospitalization)
  Sender: FDA-Public Use
  Company Number: GB-TEVA-296164ISR

PATIENT
  Sex: Male

DRUGS (5)
  1. AMLODIPINE [Concomitant]
     Dates: start: 20100903
  2. DACARBAZINE [Suspect]
     Indication: MALIGNANT MELANOMA
     Route: 042
     Dates: start: 20100907
  3. SIMAVASTATIN [Concomitant]
     Dates: start: 20080101
  4. IBUPROFEN [Concomitant]
     Dates: start: 20100701
  5. ACETAMINOPHEN [Concomitant]
     Dates: start: 20100701

REACTIONS (1)
  - THROMBOSIS [None]
